FAERS Safety Report 4951333-1 (Version None)
Quarter: 2006Q1

REPORT INFORMATION
  Report Type: 
  Country: None (occurrence: None)
  Receive Date: 20060317
  Receipt Date: 20060301
  Transmission Date: 20060701
  Serious: Yes (Death, Other)
  Sender: FDA-Public Use
  Company Number: JP200603000660

PATIENT
  Age: 17 Year
  Sex: Male
  Weight: 55 kg

DRUGS (3)
  1. GEMZAR [Suspect]
     Indication: PANCREATIC CARCINOMA
     Dosage: 1000 MG, OTHER, INTRAVENOUS
     Route: 042
     Dates: start: 20031120
  2. CISPLATIN (CISPLATIN) VIAL [Concomitant]
  3. FLUOROURACIL [Concomitant]

REACTIONS (6)
  - HEPATIC FAILURE [None]
  - MALAISE [None]
  - MALIGNANT ASCITES [None]
  - NEOPLASM PROGRESSION [None]
  - STOMATITIS [None]
  - TUMOUR MARKER INCREASED [None]
